FAERS Safety Report 13622703 (Version 1)
Quarter: 2017Q2

REPORT INFORMATION
  Report Type: Other
  Country: GB (occurrence: US)
  Receive Date: 20170607
  Receipt Date: 20170607
  Transmission Date: 20170830
  Serious: Yes (Life-Threatening, Hospitalization, Other)
  Sender: FDA-Public Use
  Company Number: US-INTERNATIONAL MEDICATION SYSTEMS, LIMITED-2021657

PATIENT
  Age: 39 Year
  Sex: Male

DRUGS (3)
  1. METHYLPREDNISOLONE. [Suspect]
     Active Substance: METHYLPREDNISOLONE
  2. BUPIVACAINE. [Suspect]
     Active Substance: BUPIVACAINE
  3. EPINEPHRINE - TPI TARGETED THE LEFT ILIOPSOAS TENDON [Suspect]
     Active Substance: EPINEPHRINE
     Indication: ARTHRALGIA

REACTIONS (7)
  - Respiratory distress [None]
  - Familial periodic paralysis [Recovered/Resolved]
  - Electrocardiogram U-wave abnormality [None]
  - Electrocardiogram T wave amplitude decreased [None]
  - Sinus arrhythmia [None]
  - Blood creatine phosphokinase increased [None]
  - Metabolic acidosis [None]
